FAERS Safety Report 9800037 (Version 2)
Quarter: 2014Q1

REPORT INFORMATION
  Report Type: Spontaneous
  Country: US (occurrence: US)
  Receive Date: 20140106
  Receipt Date: 20140106
  Transmission Date: 20141002
  Serious: Yes (Hospitalization)
  Sender: FDA-Public Use
  Company Number: US-GILEAD-2010-0030963

PATIENT
  Age: 40 Year
  Sex: Female

DRUGS (9)
  1. LETAIRIS [Suspect]
     Indication: PULMONARY ARTERIAL HYPERTENSION
     Route: 048
  2. REMODULIN [Concomitant]
  3. FUROSEMIDE [Concomitant]
  4. SPIRONOLACT [Concomitant]
  5. DILTIAZEM [Concomitant]
  6. CITALOPRAM [Concomitant]
  7. PREVACID [Concomitant]
  8. DOCUSATE [Concomitant]
  9. ATRIPLA [Concomitant]

REACTIONS (1)
  - Oedema [Not Recovered/Not Resolved]
